FAERS Safety Report 8791982 (Version 1)
Quarter: 2012Q4

REPORT INFORMATION
  Report Type: 
  Country: IT (occurrence: IT)
  Receive Date: 20120918
  Receipt Date: 20120918
  Transmission Date: 20130627
  Serious: Yes (Hospitalization)
  Sender: FDA-Public Use
  Company Number: IT-TEVA-358679ISR

PATIENT
  Age: 37 Year
  Sex: Male

DRUGS (2)
  1. CARBAMAZEPINE [Suspect]
     Indication: TINNITUS
     Dosage: 400 Milligram Daily;
     Route: 048
     Dates: start: 20120528, end: 20120728
  2. GADODIAMIDE [Concomitant]
     Indication: SCAN WITH CONTRAST

REACTIONS (1)
  - Drug reaction with eosinophilia and systemic symptoms [Recovering/Resolving]
